FAERS Safety Report 18170525 (Version 13)
Quarter: 2020Q4

REPORT INFORMATION
  Report Type: Report from Study
  Country: CN (occurrence: CN)
  Receive Date: 20200819
  Receipt Date: 20201023
  Transmission Date: 20210113
  Serious: Yes (Death, Life-Threatening, Hospitalization)
  Sender: FDA-Public Use
  Company Number: CN-EISAI MEDICAL RESEARCH-EC-2020-079103

PATIENT
  Age: 46 Year
  Sex: Male
  Weight: 48.5 kg

DRUGS (10)
  1. PEMBROLIZUMAB. [Suspect]
     Active Substance: PEMBROLIZUMAB
     Indication: NON-SMALL CELL LUNG CANCER METASTATIC
     Route: 041
     Dates: start: 20200114, end: 20200630
  2. IBANDRONATE SODIUM. [Concomitant]
     Active Substance: IBANDRONATE SODIUM
     Dates: start: 20200721, end: 20200721
  3. ESOMEPRAZOLE SODIUM. [Concomitant]
     Active Substance: ESOMEPRAZOLE SODIUM
     Route: 042
     Dates: start: 20200721, end: 20200721
  4. PEMBROLIZUMAB. [Suspect]
     Active Substance: PEMBROLIZUMAB
     Route: 041
     Dates: start: 20200721, end: 20200721
  5. PYRIDOXINE [Concomitant]
     Active Substance: PYRIDOXINE
     Dates: start: 20200608, end: 20200810
  6. SMECTITE [Concomitant]
     Active Substance: MONTMORILLONITE
     Dates: start: 20200714, end: 20200726
  7. FU FANG JIA YANG NA MING JIAO NANG [Concomitant]
     Dates: start: 20200409
  8. LENVATINIB [Suspect]
     Active Substance: LENVATINIB
     Indication: NON-SMALL CELL LUNG CANCER METASTATIC
     Route: 048
     Dates: start: 20200114, end: 20200810
  9. BAI DUO BANG [Concomitant]
     Dates: start: 20200602, end: 20200810
  10. BACILLUS LICHENFORMIS [Concomitant]
     Dates: start: 20200727, end: 20200727

REACTIONS (2)
  - Pneumonitis [Fatal]
  - Immune-mediated myocarditis [Fatal]

NARRATIVE: CASE EVENT DATE: 20200728
